FAERS Safety Report 8231551-X (Version None)
Quarter: 2012Q1

REPORT INFORMATION
  Report Type: 
  Country: None (occurrence: None)
  Receive Date: 20120323
  Receipt Date: 20120321
  Transmission Date: 20120608
  Serious: Yes (Death, Other)
  Sender: FDA-Public Use
  Company Number: PHHY2012NO022730

PATIENT
  Sex: Male

DRUGS (1)
  1. CLOZAPINE [Suspect]

REACTIONS (1)
  - ACUTE MYOCARDIAL INFARCTION [None]
